FAERS Safety Report 4460981-7 (Version None)
Quarter: 2004Q3

REPORT INFORMATION
  Report Type: 
  Country: None (occurrence: None)
  Receive Date: 20040928
  Receipt Date: 20040621
  Transmission Date: 20050211
  Serious: Yes (Other)
  Sender: FDA-Public Use
  Company Number: US-GLAXOSMITHKLINE-A0515410A

PATIENT
  Age: 76 Year
  Sex: Female

DRUGS (9)
  1. ADVAIR DISKUS 100/50 [Suspect]
     Dosage: 1PUFF TWICE PER DAY
     Route: 055
  2. ENALAPRIL MALEATE [Concomitant]
  3. ATENOLOL [Concomitant]
  4. METHADONE HCL [Concomitant]
  5. NEBULIZER [Concomitant]
  6. ATROVENT [Concomitant]
  7. ATIVAN [Concomitant]
  8. PENTOXIFYLLINE [Concomitant]
  9. ALBUTEROL [Concomitant]

REACTIONS (2)
  - CATARACT [None]
  - OSTEOPOROSIS [None]
